FAERS Safety Report 10904067 (Version 1)
Quarter: 2015Q1

REPORT INFORMATION
  Report Type: Spontaneous
  Country: FR (occurrence: None)
  Receive Date: 20150306
  Receipt Date: 20150306
  Transmission Date: 20150721
  Serious: Yes (Other)
  Sender: FDA-Public Use
  Company Number: 2015FR0097

PATIENT

DRUGS (1)
  1. ANAKINRA (ANAKINRA) [Suspect]
     Active Substance: ANAKINRA
     Indication: JUVENILE IDIOPATHIC ARTHRITIS

REACTIONS (2)
  - Epstein-Barr virus infection [None]
  - Histiocytosis haematophagic [None]
